FAERS Safety Report 8734058 (Version 2)
Quarter: 2012Q4

REPORT INFORMATION
  Report Type: 
  Country: US (occurrence: US)
  Receive Date: 20120821
  Receipt Date: 20121109
  Transmission Date: 20130627
  Serious: Yes (Hospitalization, Other)
  Sender: FDA-Public Use
  Company Number: US-ELI_LILLY_AND_COMPANY-US201208003357

PATIENT
  Age: 68 Year
  Sex: Male
  Weight: 98.87 kg

DRUGS (6)
  1. HUMALOG LISPRO [Suspect]
     Indication: TYPE 2 DIABETES MELLITUS
     Dosage: UNK, prn
     Dates: start: 2010
  2. LEVEMIR [Concomitant]
  3. ASPIRIN [Concomitant]
     Dosage: 345 mg, qd
  4. PLAVIX [Concomitant]
     Dosage: 75 mg, unknown
  5. SIMVASTATIN [Concomitant]
  6. METOPROLOL [Concomitant]

REACTIONS (5)
  - Myocardial infarction [Recovered/Resolved]
  - Glaucoma [Unknown]
  - Cataract [Unknown]
  - Visual impairment [Unknown]
  - Hearing impaired [Unknown]
